FAERS Safety Report 14574237 (Version 7)
Quarter: 2018Q4

REPORT INFORMATION
  Report Type: Report from Study
  Country: US (occurrence: US)
  Receive Date: 20180226
  Receipt Date: 20181022
  Transmission Date: 20190204
  Serious: Yes (Death, Life-Threatening, Hospitalization)
  Sender: FDA-Public Use
  Company Number: US-ACTELION-A-US2018-168078

PATIENT
  Age: 77 Year
  Sex: Female

DRUGS (1)
  1. OPSUMIT [Suspect]
     Active Substance: MACITENTAN
     Indication: PULMONARY ARTERIAL HYPERTENSION
     Dosage: 10 MG, QD
     Route: 048
     Dates: start: 20170831, end: 20180515

REACTIONS (11)
  - Pulmonary hypertension [Unknown]
  - Septic shock [Not Recovered/Not Resolved]
  - Productive cough [Unknown]
  - Cerebrovascular accident [Fatal]
  - Seizure [Unknown]
  - Influenza [Unknown]
  - Headache [Unknown]
  - Pneumonia [Unknown]
  - Upper respiratory tract congestion [Unknown]
  - Upper respiratory tract infection [Unknown]
  - Myalgia [Unknown]

NARRATIVE: CASE EVENT DATE: 20180213
